FAERS Safety Report 9690028 (Version 1)
Quarter: 2013Q4

REPORT INFORMATION
  Report Type: Spontaneous
  Country: US (occurrence: US)
  Receive Date: 20131115
  Receipt Date: 20131115
  Transmission Date: 20140711
  Serious: Yes (Hospitalization)
  Sender: FDA-Public Use
  Company Number: US-SA-2013SA117587

PATIENT
  Sex: Female

DRUGS (1)
  1. LANTUS [Suspect]
     Dosage: DOSE:80 UNIT(S)
     Route: 051
     Dates: start: 2003

REACTIONS (3)
  - Renal failure [Unknown]
  - Fear of death [Unknown]
  - Visual acuity reduced [Unknown]
